FAERS Safety Report 23921042 (Version 1)
Quarter: 2024Q2

REPORT INFORMATION
  Report Type: Spontaneous
  Country: US (occurrence: None)
  Receive Date: 20240530
  Receipt Date: 20240530
  Transmission Date: 20240716
  Serious: Yes (Hospitalization)
  Sender: FDA-Public Use
  Company Number: None

PATIENT
  Sex: Female

DRUGS (1)
  1. MYCOPHENOLATE MOFETIL [Suspect]
     Active Substance: MYCOPHENOLATE MOFETIL
     Indication: Interstitial lung disease
     Dosage: OTHER QUANTITY : TAKE 6 TABLETS;?FREQUENCY : DAILY;?
     Route: 048
     Dates: start: 202403

REACTIONS (5)
  - Nausea [None]
  - Pyrexia [None]
  - Vomiting [None]
  - Infection [None]
  - Tremor [None]
